FAERS Safety Report 7770805-8 (Version None)
Quarter: 2011Q3

REPORT INFORMATION
  Report Type: 
  Country: None (occurrence: None)
  Receive Date: 20110922
  Receipt Date: 20101228
  Transmission Date: 20111222
  Serious: No
  Sender: FDA-Public Use
  Company Number: US-ASTRAZENECA-2010SE61138

PATIENT
  Age: 29 Year
  Sex: Female
  Weight: 56.7 kg

DRUGS (3)
  1. SEROQUEL XR [Suspect]
     Indication: BIPOLAR DISORDER
     Route: 048
     Dates: start: 20101201, end: 20101201
  2. SEROQUEL XR [Suspect]
     Route: 048
     Dates: start: 20101201
  3. SEROQUEL XR [Suspect]
     Route: 048
     Dates: start: 20101201, end: 20101201

REACTIONS (2)
  - SLEEP DISORDER [None]
  - DIZZINESS [None]
